FAERS Safety Report 8872439 (Version 1)
Quarter: 2012Q4

REPORT INFORMATION
  Report Type: 
  Country: BE (occurrence: BE)
  Receive Date: 20121029
  Receipt Date: 20121029
  Transmission Date: 20130627
  Serious: Yes (Other)
  Sender: FDA-Public Use
  Company Number: BE-B.I. PHARMACEUTICALS,INC./RIDGEFIELD-2012-EU-05362GD

PATIENT

DRUGS (2)
  1. PIROXICAM [Suspect]
     Indication: INFECTION
     Dosage: 10 mg
     Route: 048
  2. RANITIDINE [Suspect]
     Indication: PROPHYLAXIS AGAINST GASTROINTESTINAL ULCER
     Dosage: 150 mg
     Route: 048

REACTIONS (1)
  - Gastrointestinal haemorrhage [Unknown]
